FAERS Safety Report 5994619-4 (Version None)
Quarter: 2008Q4

REPORT INFORMATION
  Report Type: 
  Country: None (occurrence: None)
  Receive Date: 20081212
  Receipt Date: 20080924
  Transmission Date: 20090506
  Serious: No
  Sender: FDA-Public Use
  Company Number: US-ABBOTT-08P-163-0475642-00

PATIENT
  Sex: Female
  Weight: 53.572 kg

DRUGS (4)
  1. HUMIRA [Suspect]
     Indication: RHEUMATOID ARTHRITIS
     Route: 058
     Dates: start: 20060801, end: 20070801
  2. HUMIRA [Suspect]
     Route: 058
     Dates: start: 20070801
  3. VOLTARAN [Concomitant]
     Indication: RHEUMATOID ARTHRITIS
     Route: 048
  4. TRAMADOL HYDROCHLORIDE [Concomitant]
     Indication: RHEUMATOID ARTHRITIS
     Dosage: 1
     Route: 048

REACTIONS (2)
  - PAIN [None]
  - SWELLING [None]
